FAERS Safety Report 13345779 (Version 1)
Quarter: 2017Q1

REPORT INFORMATION
  Report Type: Spontaneous
  Country: IT (occurrence: IT)
  Receive Date: 20170317
  Receipt Date: 20170317
  Transmission Date: 20170428
  Serious: Yes (Death)
  Sender: FDA-Public Use
  Company Number: IT-CORDEN PHARMA LATINA S.P.A.-IT-2017COR000056

PATIENT

DRUGS (8)
  1. MESNA. [Suspect]
     Active Substance: MESNA
     Indication: SMALL CELL LUNG CANCER
     Dosage: 1200 MG/M2,BEFORE FIRST DOSE OF IFOSFAMIDE, THEN AFTER 4 AND 8 HOURS, DAYS 1 TO 5 EVERY 3 WEEKS
     Route: 040
  2. NORMAL SALINE [Concomitant]
     Active Substance: SODIUM CHLORIDE
     Indication: PREMEDICATION
     Dosage: 2000 ML, OVER 2 HOURS
  3. IFOSFAMIDE. [Suspect]
     Active Substance: IFOSFAMIDE
     Indication: SMALL CELL LUNG CANCER
     Dosage: 1200 MG/M2, INFUSED IN 60 MINUTE, DAY 1 TO 4, EVERY 3 WEEKS
     Route: 042
  4. ETOPOSIDE. [Suspect]
     Active Substance: ETOPOSIDE
     Indication: SMALL CELL LUNG CANCER
     Dosage: 75 MG/M2, DAY 1 TO 4, EVERY 3 WEEKS
     Route: 042
  5. DEXAMETHASONE. [Concomitant]
     Active Substance: DEXAMETHASONE
     Indication: PROPHYLAXIS OF NAUSEA AND VOMITING
     Dosage: UNK
  6. CISPLATIN. [Suspect]
     Active Substance: CISPLATIN
     Indication: SMALL CELL LUNG CANCER
     Dosage: 20 MG/M2, INFUSED IN 30 MINUTE, DAY 1 TO 4, EVERY 3 WEEKS
     Route: 042
  7. DEXTROSE 5% [Concomitant]
     Active Substance: DEXTROSE
     Indication: PREMEDICATION
     Dosage: 1000 ML, OVER 2 HOURS
  8. MANNITOL. [Concomitant]
     Active Substance: MANNITOL
     Indication: DIURETIC THERAPY
     Dosage: UNK

REACTIONS (3)
  - Toxicity to various agents [Fatal]
  - Sepsis [Fatal]
  - Febrile neutropenia [Fatal]
